FAERS Safety Report 4812363-3 (Version None)
Quarter: 2005Q4

REPORT INFORMATION
  Report Type: 
  Country: None (occurrence: None)
  Receive Date: 20051028
  Receipt Date: 20050118
  Transmission Date: 20060501
  Serious: Yes (Other)
  Sender: FDA-Public Use
  Company Number: US-GLAXOSMITHKLINE-A0541102A

PATIENT
  Age: 78 Year
  Sex: Male

DRUGS (3)
  1. ADVAIR DISKUS 100/50 [Suspect]
     Indication: ASTHMA
     Dosage: 1PUFF TWICE PER DAY
     Route: 055
  2. NORVASC [Concomitant]
  3. ASPIRIN [Concomitant]

REACTIONS (3)
  - DYSPNOEA [None]
  - LUNG DISORDER [None]
  - PNEUMONIA [None]
